FAERS Safety Report 9668431 (Version 1)
Quarter: 2013Q4

REPORT INFORMATION
  Report Type: Spontaneous
  Country: US (occurrence: US)
  Receive Date: 20131105
  Receipt Date: 20131105
  Transmission Date: 20140711
  Serious: Yes (Death)
  Sender: FDA-Public Use
  Company Number: US-PFIZER INC-2013312280

PATIENT
  Age: 70 Year
  Sex: Male

DRUGS (1)
  1. SUTENT [Suspect]
     Indication: MALIGNANT URINARY TRACT NEOPLASM
     Dosage: 50 MG, UNK
     Dates: start: 20130220

REACTIONS (3)
  - Death [Fatal]
  - Disease progression [Unknown]
  - Malignant urinary tract neoplasm [Unknown]
